FAERS Safety Report 12874469 (Version 3)
Quarter: 2018Q4

REPORT INFORMATION
  Report Type: Report from Study
  Country: US (occurrence: US)
  Receive Date: 20161021
  Receipt Date: 20181231
  Transmission Date: 20190204
  Serious: Yes (Death, Hospitalization)
  Sender: FDA-Public Use
  Company Number: US-ACTELION-A-NJ2016-135644

PATIENT
  Age: 71 Year
  Sex: Male
  Weight: 58.96 kg

DRUGS (4)
  1. OPSUMIT [Suspect]
     Active Substance: MACITENTAN
     Dosage: 10 MG, QD
     Route: 048
     Dates: start: 201610
  2. SILDENAFIL. [Concomitant]
     Active Substance: SILDENAFIL
     Dosage: UNK
  3. OPSUMIT [Suspect]
     Active Substance: MACITENTAN
     Indication: PULMONARY ARTERIAL HYPERTENSION
     Dosage: 10 MG, QD
     Route: 048
     Dates: start: 20150630, end: 20161008
  4. ORENITRAM [Suspect]
     Active Substance: TREPROSTINIL
     Indication: PRODUCT USED FOR UNKNOWN INDICATION
     Dosage: UNK
     Route: 065
     Dates: end: 20161008

REACTIONS (18)
  - Hypotension [Unknown]
  - Dizziness [Unknown]
  - Therapy non-responder [Unknown]
  - Blood creatine decreased [Unknown]
  - Asthenia [Unknown]
  - Acute kidney injury [Unknown]
  - Somnolence [Unknown]
  - Malaise [Unknown]
  - Gait disturbance [Unknown]
  - Pain in jaw [Unknown]
  - Headache [Unknown]
  - Pulmonary congestion [Unknown]
  - Feeling abnormal [Unknown]
  - Renal impairment [Unknown]
  - Diarrhoea [Unknown]
  - Dehydration [Unknown]
  - Productive cough [Unknown]
  - Death [Fatal]

NARRATIVE: CASE EVENT DATE: 20181211
